FAERS Safety Report 5622677-5 (Version None)
Quarter: 2008Q1

REPORT INFORMATION
  Report Type: 
  Country: None (occurrence: None)
  Receive Date: 20080205
  Receipt Date: 20071128
  Transmission Date: 20080703
  Serious: Yes (Other)
  Sender: FDA-Public Use
  Company Number: B0506038A

PATIENT
  Age: 76 Year
  Sex: Male

DRUGS (2)
  1. DIGOXIN [Suspect]
  2. ITRACONAZOLE [Suspect]

REACTIONS (5)
  - BRADYCARDIA [None]
  - CARDIOACTIVE DRUG LEVEL INCREASED [None]
  - DRUG INTERACTION [None]
  - FATIGUE [None]
  - OEDEMA [None]
